FAERS Safety Report 5336118-9 (Version None)
Quarter: 2007Q2

REPORT INFORMATION
  Report Type: 
  Country: None (occurrence: None)
  Receive Date: 20070302
  Receipt Date: 20061113
  Transmission Date: 20071010
  Serious: No
  Sender: FDA-Public Use
  Company Number: PHEH2006US14208

PATIENT
  Age: 72 Year
  Sex: Female
  Weight: 85.7 kg

DRUGS (7)
  1. ENABLEX [Suspect]
     Indication: HYPERTONIC BLADDER
     Dosage: 15 MG, QD
     Dates: start: 20060901, end: 20061013
  2. ATENOLOL [Concomitant]
  3. ATACAND [Concomitant]
  4. OCUVITE (ASCORBIC ACID, RETINOL, TOCOPHEROL) [Concomitant]
  5. VITAMIN B12 [Concomitant]
  6. NEXIUM [Concomitant]
  7. TYLENOL [Concomitant]

REACTIONS (2)
  - DRUG INEFFECTIVE [None]
  - TREMOR [None]
